FAERS Safety Report 23062927 (Version 1)
Quarter: 2023Q4

REPORT INFORMATION
  Report Type: Spontaneous
  Country: TR (occurrence: TR)
  Receive Date: 20231013
  Receipt Date: 20231013
  Transmission Date: 20240110
  Serious: Yes (Other)
  Sender: FDA-Public Use
  Company Number: TR-STRIDES ARCOLAB LIMITED-2023SP015508

PATIENT
  Age: 10 Year
  Sex: Male

DRUGS (4)
  1. METHYLPHENIDATE [Suspect]
     Active Substance: METHYLPHENIDATE
     Indication: Attention deficit hyperactivity disorder
     Dosage: UNK (SHORT ACTING)
     Route: 065
  2. METHYLPHENIDATE [Suspect]
     Active Substance: METHYLPHENIDATE
     Indication: Intellectual disability
     Dosage: 10 MILLIGRAM PER DAY, CONTROLLED RELEASE (TABLET)
     Route: 065
  3. METHYLPHENIDATE [Suspect]
     Active Substance: METHYLPHENIDATE
     Dosage: 20 MILLIGRAM PER DAY, (INCREASED) CONTROLLED RELEASE (TABLET)
     Route: 065
  4. METHYLPHENIDATE [Suspect]
     Active Substance: METHYLPHENIDATE
     Dosage: UNK, REDUCED
     Route: 065

REACTIONS (4)
  - Periorbital swelling [Recovered/Resolved]
  - Eye contusion [Recovered/Resolved]
  - Nausea [Unknown]
  - Off label use [Unknown]
